FAERS Safety Report 6091860-X (Version None)
Quarter: 2009Q1

REPORT INFORMATION
  Report Type: 
  Country: None (occurrence: None)
  Receive Date: 20090225
  Receipt Date: 20080818
  Transmission Date: 20090719
  Serious: No
  Sender: FDA-Public Use
  Company Number: A0743084A

PATIENT
  Age: 43 Year
  Sex: Female

DRUGS (2)
  1. VALTREX [Suspect]
     Indication: GENITAL HERPES
     Route: 048
     Dates: start: 20080813
  2. NO CONCURRENT MEDICATION [Concomitant]

REACTIONS (5)
  - BREAST PAIN [None]
  - DECREASED APPETITE [None]
  - EUPHORIC MOOD [None]
  - PAIN IN EXTREMITY [None]
  - PARAESTHESIA [None]
